FAERS Safety Report 5592566-3 (Version None)
Quarter: 2008Q1

REPORT INFORMATION
  Report Type: 
  Country: None (occurrence: None)
  Receive Date: 20080111
  Receipt Date: 20080102
  Transmission Date: 20080703
  Serious: Yes (Life-Threatening, Disabling, Other)
  Sender: FDA-Public Use
  Company Number: VISP-NO-0801S-0002

PATIENT
  Age: 69 Year
  Sex: Male

DRUGS (5)
  1. VISIPAQUE [Suspect]
     Indication: DRUG USE FOR UNKNOWN INDICATION
     Dosage: SINGLE DOSE, I.V.
     Route: 042
     Dates: start: 20071115, end: 20071115
  2. CLOPIDOGREL [Concomitant]
  3. ASPIRIN [Concomitant]
  4. ENOXAPARIN SODIUM [Concomitant]
  5. ISOSORBIDE DINITRATE [Concomitant]

REACTIONS (10)
  - ACUTE PULMONARY OEDEMA [None]
  - AKINESIA [None]
  - AUTONOMIC NERVOUS SYSTEM IMBALANCE [None]
  - CARDIO-RESPIRATORY ARREST [None]
  - CORONARY ARTERY OCCLUSION [None]
  - ELECTROCARDIOGRAM ABNORMAL [None]
  - HYPOTENSION [None]
  - LUNG INFECTION [None]
  - MUSCULOSKELETAL DISORDER [None]
  - RENAL FAILURE [None]
